FAERS Safety Report 7524666-2 (Version None)
Quarter: 2011Q2

REPORT INFORMATION
  Report Type: 
  Country: None (occurrence: None)
  Receive Date: 20110606
  Receipt Date: 20110531
  Transmission Date: 20111010
  Serious: Yes (Other)
  Sender: FDA-Public Use
  Company Number: US-PFIZER INC-2011058305

PATIENT
  Sex: Male
  Weight: 78.005 kg

DRUGS (3)
  1. VIAGRA [Suspect]
     Dosage: 100 MG, UNK
  2. SUBOXONE [Concomitant]
     Indication: DRUG DEPENDENCE
     Dosage: UNK
  3. VIAGRA [Suspect]
     Indication: ERECTILE DYSFUNCTION
     Dosage: 50 MG, AS NEEDED
     Route: 048
     Dates: start: 20110223

REACTIONS (7)
  - ANXIETY [None]
  - DRUG INEFFECTIVE [None]
  - SOMNOLENCE [None]
  - ATTENTION DEFICIT/HYPERACTIVITY DISORDER [None]
  - DEPRESSION [None]
  - TENSION [None]
  - CYANOPSIA [None]
